FAERS Safety Report 13191671 (Version 1)
Quarter: 2017Q1

REPORT INFORMATION
  Report Type: Spontaneous
  Country: US (occurrence: US)
  Receive Date: 20170206
  Receipt Date: 20170206
  Transmission Date: 20170428
  Serious: Yes (Disabling)
  Sender: FDA-Public Use
  Company Number: None

PATIENT
  Age: 30 Year
  Sex: Female
  Weight: 54 kg

DRUGS (6)
  1. CLINDAMYCIN. [Suspect]
     Active Substance: CLINDAMYCIN
     Indication: INFECTION
     Dosage: ?          QUANTITY:1 TABLET(S);?
     Route: 048
     Dates: start: 20161106, end: 20161119
  2. PROBIOTIC + SACCHAROMYCES BOULARDII [Concomitant]
  3. DGL (LICORICE) [Concomitant]
  4. SPINRULINA [Concomitant]
  5. REISHI [Concomitant]
     Active Substance: REISHI
  6. OIL OF OREGANO [Concomitant]

REACTIONS (2)
  - Malaise [None]
  - Gastric disorder [None]

NARRATIVE: CASE EVENT DATE: 20161128
